FAERS Safety Report 20550785 (Version 2)
Quarter: 2022Q1

REPORT INFORMATION
  Report Type: Report from Study
  Country: CA (occurrence: CA)
  Receive Date: 20220304
  Receipt Date: 20220329
  Transmission Date: 20220423
  Serious: Yes (Other)
  Sender: FDA-Public Use
  Company Number: CA-ABBVIE-22K-028-4299666-00

PATIENT
  Sex: Female

DRUGS (3)
  1. HUMIRA [Suspect]
     Active Substance: ADALIMUMAB
     Indication: Rheumatoid arthritis
     Route: 058
     Dates: start: 20210330
  2. COVID-19 VACCINE NOS [Suspect]
     Active Substance: COVID-19 VACCINE NOS
     Indication: COVID-19 immunisation
     Dosage: FIRS DOSE
     Route: 030
     Dates: start: 202106, end: 202106
  3. COVID-19 VACCINE NOS [Suspect]
     Active Substance: COVID-19 VACCINE NOS
     Route: 030
     Dates: start: 202107, end: 202107

REACTIONS (11)
  - Blindness [Unknown]
  - Cataract [Unknown]
  - Illness [Unknown]
  - Gait inability [Recovering/Resolving]
  - Joint injury [Recovering/Resolving]
  - Liver function test increased [Unknown]
  - Joint swelling [Recovered/Resolved]
  - Fall [Unknown]
  - Arthropathy [Recovering/Resolving]
  - Arthralgia [Recovered/Resolved]
  - Abdominal pain [Not Recovered/Not Resolved]

NARRATIVE: CASE EVENT DATE: 20210101
